FAERS Safety Report 5508705-6 (Version None)
Quarter: 2007Q4

REPORT INFORMATION
  Report Type: 
  Country: None (occurrence: None)
  Receive Date: 20071107
  Receipt Date: 20071101
  Transmission Date: 20080405
  Serious: Yes (Death, Life-Threatening, Hospitalization, Other)
  Sender: FDA-Public Use
  Company Number: HQWYE184418MAR05

PATIENT
  Sex: Male
  Weight: 83.2 kg

DRUGS (16)
  1. SIROLIMUS [Suspect]
     Indication: PROPHYLAXIS AGAINST TRANSPLANT REJECTION
     Route: 048
     Dates: start: 20050314, end: 20050330
  2. MYCOPHENOLATE MOFETIL [Suspect]
     Dosage: 2000 MG
     Route: 065
     Dates: end: 20050301
  3. INSULIN [Concomitant]
     Dosage: UNKNOWN
     Route: 065
  4. METOPROLOL TARTRATE [Concomitant]
     Route: 065
  5. RAMIPRIL [Concomitant]
     Route: 065
  6. ROSIGLITAZONE [Concomitant]
     Route: 065
  7. RENAGEL [Concomitant]
     Dosage: UNKNOWN
     Route: 065
  8. GABAPENTIN [Concomitant]
     Dosage: UNKNOWN
     Route: 065
  9. EPOGEN [Concomitant]
     Dosage: WEEKLY
     Route: 065
  10. LEVOTHYROXINE SODIUM [Concomitant]
     Route: 065
  11. SIMVASTATIN [Concomitant]
     Route: 065
  12. DOMPERIDONE [Concomitant]
     Dosage: P.R.N.
     Route: 065
  13. ACETYLSALICYLIC ACID SRT [Concomitant]
     Route: 065
  14. PREDNISONE [Suspect]
     Indication: IMMUNOSUPPRESSANT DRUG THERAPY
     Dosage: UNKNOWN
     Route: 065
  15. TACROLIMUS [Concomitant]
     Indication: IMMUNOSUPPRESSANT DRUG THERAPY
     Dosage: UNKNOWN
     Route: 065
  16. DACLIZUMAB [Concomitant]
     Dosage: 100 MG (ONE DOSE ADMINISTERED UNTIL NOW)
     Route: 065

REACTIONS (8)
  - CLOSTRIDIAL INFECTION [None]
  - COMPLICATIONS OF TRANSPLANTED KIDNEY [None]
  - DEEP VEIN THROMBOSIS [None]
  - INTRA-ABDOMINAL HAEMATOMA [None]
  - MYOCARDIAL INFARCTION [None]
  - PELVIC HAEMATOMA [None]
  - SEPSIS [None]
  - THROMBOCYTOPENIA [None]
